FAERS Safety Report 7194061-7 (Version None)
Quarter: 2010Q4

REPORT INFORMATION
  Report Type: 
  Country: None (occurrence: None)
  Receive Date: 20101223
  Receipt Date: 20101217
  Transmission Date: 20110411
  Serious: Yes (Other)
  Sender: FDA-Public Use
  Company Number: US-US-EMD SERONO, INC.-7013661

PATIENT
  Sex: Male
  Weight: 94 kg

DRUGS (5)
  1. REBIF [Suspect]
     Indication: MULTIPLE SCLEROSIS
     Route: 058
  2. LISINOPRIL [Concomitant]
     Indication: HYPERTENSION
  3. FISH OIL [Concomitant]
  4. MORPHINE [Concomitant]
     Indication: PAIN
  5. OXYCODONE [Concomitant]
     Indication: PAIN

REACTIONS (1)
  - COLON CANCER [None]
